FAERS Safety Report 8923297 (Version 2)
Quarter: 2013Q2

REPORT INFORMATION
  Report Type: Spontaneous
  Country: DE (occurrence: None)
  Receive Date: 20121115
  Receipt Date: 20130614
  Transmission Date: 20140414
  Serious: Yes (Hospitalization, Other)
  Sender: FDA-Public Use
  Company Number: VAL_00980_2012

PATIENT
  Age: 35 Year
  Sex: Female

DRUGS (2)
  1. BROMOCRIPTINE [Suspect]
     Indication: PRODUCT USED FOR UNKNOWN INDICATION
     Dosage: (2.5 MG, 2.5MG, UNK (ON DAY 1)
  2. LEVOSIMENDAN [Concomitant]

REACTIONS (2)
  - Cardiac failure [None]
  - Condition aggravated [None]
